FAERS Safety Report 7577306-0 (Version None)
Quarter: 2011Q2

REPORT INFORMATION
  Report Type: 
  Country: None (occurrence: None)
  Receive Date: 20110628
  Receipt Date: 20110523
  Transmission Date: 20111010
  Serious: No
  Sender: FDA-Public Use
  Company Number: US-BAYER-2011-045348

PATIENT
  Age: 82 Year
  Sex: Female
  Weight: 73 kg

DRUGS (7)
  1. ALEVE (CAPLET) [Suspect]
     Indication: ARTHRITIS
     Dosage: 2 DF, QD
     Route: 048
  2. ATENOLOL [Concomitant]
  3. NIFEDIPINE [Concomitant]
  4. CAPTOPRIL [Concomitant]
  5. ACETYLSALICYLIC ACID SRT [Concomitant]
  6. FUROSEMIDE [Concomitant]
  7. VITAMIN B-12 [Concomitant]

REACTIONS (1)
  - NO ADVERSE EVENT [None]
